FAERS Safety Report 6831839-0 (Version None)
Quarter: 2010Q3

REPORT INFORMATION
  Report Type: 
  Country: None (occurrence: None)
  Receive Date: 20100706
  Receipt Date: 20100629
  Transmission Date: 20110219
  Serious: Yes (Death)
  Sender: FDA-Public Use
  Company Number: FRA-LIT-2010001

PATIENT
  Sex: Female

DRUGS (4)
  1. CYSTADANE [Suspect]
     Indication: METABOLIC DISORDER
     Dosage: 3 G EVERY DAY, ORAL
     Route: 048
  2. HYDROXOCOBALAMIN [Concomitant]
  3. FOLINIC ACID [Concomitant]
  4. METHIONE [Concomitant]

REACTIONS (2)
  - CEREBRAL ATROPHY [None]
  - NUCLEAR MAGNETIC RESONANCE IMAGING BRAIN ABNORMAL [None]
